FAERS Safety Report 23793568 (Version 1)
Quarter: 2024Q2

REPORT INFORMATION
  Report Type: Spontaneous
  Country: GB (occurrence: GB)
  Receive Date: 20240429
  Receipt Date: 20240429
  Transmission Date: 20240716
  Serious: Yes (Other)
  Sender: FDA-Public Use
  Company Number: None

PATIENT
  Age: 62 Year
  Sex: Female
  Weight: 86 kg

DRUGS (4)
  1. EMPAGLIFLOZIN [Suspect]
     Active Substance: EMPAGLIFLOZIN
     Indication: Product used for unknown indication
     Route: 048
     Dates: start: 20240301, end: 20240304
  2. BALNEUM PLUS CREAM [Concomitant]
     Indication: Product used for unknown indication
     Dosage: 500G
     Route: 061
     Dates: start: 20240220, end: 20240403
  3. LEVOTHYROXINE SODIUM [Concomitant]
     Active Substance: LEVOTHYROXINE SODIUM
     Indication: Polycythaemia
     Dosage: 1 EACH MORNING PREFERABLY 30-60 MIN BEFORE BREAKFAST, CAFFEINE-CONTAINING DRINKS OR OTHER MED
     Route: 048
     Dates: start: 20240415
  4. ALBUTEROL [Concomitant]
     Active Substance: ALBUTEROL
     Indication: Product used for unknown indication
     Dosage: ONE OR TWO PUFFS TO BE INHALED FOUR TIMES A DAY WHEN REQUIRED
     Route: 055
     Dates: start: 20240216

REACTIONS (1)
  - Haemoglobin increased [Not Recovered/Not Resolved]
